FAERS Safety Report 7743985-8 (Version None)
Quarter: 2011Q3

REPORT INFORMATION
  Report Type: 
  Country: None (occurrence: None)
  Receive Date: 20110909
  Receipt Date: 20110909
  Transmission Date: 20111222
  Serious: Yes (Other)
  Sender: FDA-Public Use
  Company Number: None

PATIENT
  Age: 52 Year
  Sex: Female
  Weight: 61.2356 kg

DRUGS (1)
  1. CLARITIN [Suspect]
     Indication: MIGRAINE
     Dosage: 1 TABLET ONLY ONCE BY MOUTH
     Route: 048
     Dates: start: 20110817

REACTIONS (5)
  - PYREXIA [None]
  - NASAL CONGESTION [None]
  - EYE SWELLING [None]
  - THROAT IRRITATION [None]
  - SWELLING FACE [None]
